FAERS Safety Report 12997834 (Version 1)
Quarter: 2016Q4

REPORT INFORMATION
  Report Type: Spontaneous
  Country: GB (occurrence: GB)
  Receive Date: 20161205
  Receipt Date: 20161205
  Transmission Date: 20170207
  Serious: Yes (Other)
  Sender: FDA-Public Use
  Company Number: GB-TEVA-716009ACC

PATIENT
  Age: 73 Year
  Sex: Female
  Weight: 70.8 kg

DRUGS (17)
  1. GABAPENTIN. [Suspect]
     Active Substance: GABAPENTIN
     Indication: NEURALGIA
     Dosage: 1800 MILLIGRAM DAILY;
     Route: 048
  2. MINOCYCLINE [Concomitant]
     Active Substance: MINOCYCLINE\MINOCYCLINE HYDROCHLORIDE
  3. CARBOPLATIN. [Suspect]
     Active Substance: CARBOPLATIN
     Indication: CHEMOTHERAPY
     Dosage: 400MG STAT?LAST DOSE OF CYCLE
     Route: 042
     Dates: start: 20161027, end: 20161027
  4. DALTEPARIN SODIUM [Suspect]
     Active Substance: DALTEPARIN SODIUM
     Indication: THROMBOSIS PROPHYLAXIS
     Dosage: 5000 IU (INTERNATIONAL UNIT) DAILY;
     Route: 003
     Dates: start: 20161104
  5. CARBOCISTEINE [Concomitant]
     Active Substance: CARBOCYSTEINE
  6. RAMIPRIL. [Concomitant]
     Active Substance: RAMIPRIL
  7. IVABRADINE [Concomitant]
     Active Substance: IVABRADINE
  8. HYDROXYZINE [Concomitant]
     Active Substance: HYDROXYZINE\HYDROXYZINE HYDROCHLORIDE
  9. GABAPENTIN. [Suspect]
     Active Substance: GABAPENTIN
     Dosage: 600 MILLIGRAM DAILY;
     Route: 048
  10. OXYCODONE [Concomitant]
     Active Substance: OXYCODONE
  11. ASPIRIN. [Concomitant]
     Active Substance: ASPIRIN
  12. MONTELUKAST [Concomitant]
     Active Substance: MONTELUKAST SODIUM
  13. LINAGLIPTIN [Concomitant]
     Active Substance: LINAGLIPTIN
  14. ACTAVIS UK METFORMIN [Concomitant]
  15. LEVOTHYROXINE. [Concomitant]
     Active Substance: LEVOTHYROXINE
  16. FLUCLOXACILLIN [Concomitant]
     Active Substance: FLUCLOXACILLIN
  17. LANSOPRAZOLE. [Concomitant]
     Active Substance: LANSOPRAZOLE

REACTIONS (1)
  - Thrombocytopenia [Unknown]

NARRATIVE: CASE EVENT DATE: 20161107
